FAERS Safety Report 5528546-3 (Version None)
Quarter: 2007Q4

REPORT INFORMATION
  Report Type: 
  Country: None (occurrence: None)
  Receive Date: 20071121
  Receipt Date: 20071112
  Transmission Date: 20080405
  Serious: Yes (Life-Threatening, Hospitalization, Other)
  Sender: FDA-Public Use
  Company Number: VER_00085_2007

PATIENT
  Age: 40 Year
  Sex: Male

DRUGS (2)
  1. TWINJECT 0.3 [Suspect]
     Indication: ANAPHYLACTIC REACTION
     Dosage: (0.3 MG INTRAMUSCULAR)
     Route: 030
     Dates: start: 20070802
  2. OTHER ANTI-ASTHMATICS, INHALANTS [Concomitant]

REACTIONS (3)
  - CHEST DISCOMFORT [None]
  - DEVICE MALFUNCTION [None]
  - PHARMACEUTICAL PRODUCT COMPLAINT [None]
